FAERS Safety Report 8167999-1 (Version None)
Quarter: 2012Q1

REPORT INFORMATION
  Report Type: 
  Country: None (occurrence: None)
  Receive Date: 20120227
  Receipt Date: 20120217
  Transmission Date: 20120608
  Serious: Yes (Other)
  Sender: FDA-Public Use
  Company Number: DE-GLAXOSMITHKLINE-D0074444A

PATIENT
  Sex: Female

DRUGS (4)
  1. METOPROLOL [Concomitant]
     Route: 065
  2. VOTRIENT [Suspect]
     Indication: METASTATIC RENAL CELL CARCINOMA
     Dosage: 800MG PER DAY
     Route: 048
     Dates: start: 20111003
  3. LEVOTHYROXINE SODIUM [Concomitant]
     Route: 048
  4. ENALAPRIL MALEATE [Concomitant]
     Route: 065

REACTIONS (3)
  - ALOPECIA [None]
  - HYPERTHYROIDISM [None]
  - STOMATITIS [None]
